FAERS Safety Report 9514539 (Version 1)
Quarter: 2013Q3

REPORT INFORMATION
  Report Type: Spontaneous
  Country: FR (occurrence: FR)
  Receive Date: 20130911
  Receipt Date: 20130911
  Transmission Date: 20140515
  Serious: Yes (Other)
  Sender: FDA-Public Use
  Company Number: FR-BRISTOL-MYERS SQUIBB COMPANY-19230671

PATIENT
  Age: 38 Year
  Sex: Male

DRUGS (7)
  1. ABILIFY [Suspect]
     Route: 048
     Dates: start: 2010
  2. QUETIAPINE [Suspect]
     Route: 048
  3. DEPAKOTE [Concomitant]
  4. XANAX [Concomitant]
  5. ATARAX [Concomitant]
  6. MELATONIN [Concomitant]
  7. MODIODAL [Concomitant]

REACTIONS (1)
  - Deep vein thrombosis [Recovering/Resolving]
